FAERS Safety Report 10442215 (Version 1)
Quarter: 2014Q2

REPORT INFORMATION
  Report Type: Spontaneous
  Country: US (occurrence: None)
  Receive Date: 20140604
  Receipt Date: 20140604
  Transmission Date: 20141212
  Serious: Yes (Hospitalization)
  Sender: FDA-Public Use
  Company Number: 20090721CINRY1050

PATIENT
  Age: 32 Year
  Sex: Female
  Weight: 241 kg

DRUGS (9)
  1. CINRYZE [Suspect]
     Indication: HEREDITARY ANGIOEDEMA
     Dosage: 1000 UNIT, 2 IN 1 WK
     Route: 042
     Dates: start: 200905
  2. CINRYZE [Suspect]
     Dosage: 1000 UNIT, 2 IN 1 WK
     Route: 042
     Dates: start: 200905
  3. BENADRYL(DIPHENHYDRAMINE HYDROCHLORIDE) [Concomitant]
  4. DIAZEPAM (DIAZEPAM) [Concomitant]
  5. EFFEXOR XR(VENLAFAXINE HYDROCHLORIDE) [Concomitant]
  6. OXYCODONE(OXYCODONE) [Concomitant]
  7. OXYCONTIN(OXYCODONE HYDROCHLORIDE) [Concomitant]
  8. PREVACID(LANSOPRAZOLE) [Concomitant]
  9. PROMETHAZINE(PROMETHAZINE) [Concomitant]

REACTIONS (2)
  - Hereditary angioedema [None]
  - Angioedema [None]
